APPROVED DRUG PRODUCT: TELMISARTAN
Active Ingredient: TELMISARTAN
Strength: 80MG
Dosage Form/Route: TABLET;ORAL
Application: A078710 | Product #003 | TE Code: AB
Applicant: CHARTWELL RX SCIENCES LLC
Approved: Jan 8, 2014 | RLD: No | RS: No | Type: RX